FAERS Safety Report 25044152 (Version 3)
Quarter: 2025Q2

REPORT INFORMATION
  Report Type: Spontaneous
  Country: NL (occurrence: NL)
  Receive Date: 20250306
  Receipt Date: 20250505
  Transmission Date: 20250716
  Serious: Yes (Death, Hospitalization)
  Sender: ROCHE
  Company Number: None

PATIENT
  Age: 69 Year
  Sex: Male

DRUGS (2)
  1. RITUXIMAB [Suspect]
     Active Substance: RITUXIMAB
     Indication: Rheumatoid arthritis
     Route: 042
  2. METHOTREXATE [Suspect]
     Active Substance: METHOTREXATE
     Indication: Rheumatoid arthritis
     Route: 065

REACTIONS (1)
  - Progressive multifocal leukoencephalopathy [Fatal]
